FAERS Safety Report 20226712 (Version 1)
Quarter: 2021Q4

REPORT INFORMATION
  Report Type: Spontaneous
  Country: US (occurrence: US)
  Receive Date: 20211224
  Receipt Date: 20211224
  Transmission Date: 20220303
  Serious: Yes (Other)
  Sender: FDA-Public Use
  Company Number: US-GLAXOSMITHKLINE-US2021GSK262481

PATIENT
  Sex: Female

DRUGS (2)
  1. ZANTAC [Suspect]
     Active Substance: RANITIDINE HYDROCHLORIDE
     Dosage: 75MG, 150MG|OVER THE COUNTER
     Route: 065
     Dates: start: 198101, end: 201512
  2. ZANTAC [Suspect]
     Active Substance: RANITIDINE HYDROCHLORIDE
     Dosage: 75MG, 150MG|OVER THE COUNTER
     Route: 065
     Dates: start: 198101, end: 201512

REACTIONS (4)
  - Breast cancer [Unknown]
  - Renal cancer [Unknown]
  - Hepatic cancer [Unknown]
  - Gastric cancer [Unknown]
